FAERS Safety Report 13689047 (Version 1)
Quarter: 2017Q2

REPORT INFORMATION
  Report Type: Spontaneous
  Country: US (occurrence: US)
  Receive Date: 20170624
  Receipt Date: 20170624
  Transmission Date: 20170830
  Serious: Yes (Life-Threatening, Disabling, Other)
  Sender: FDA-Public Use
  Company Number: None

PATIENT
  Age: 67 Year
  Sex: Female
  Weight: 90 kg

DRUGS (7)
  1. ACETAMINOPHEN. [Concomitant]
     Active Substance: ACETAMINOPHEN
  2. IBUPROFEN. [Concomitant]
     Active Substance: IBUPROFEN
  3. PRISTIQ EXTENDED-RELEASE [Concomitant]
     Active Substance: DESVENLAFAXINE SUCCINATE
  4. IBUPROFEN. [Concomitant]
     Active Substance: IBUPROFEN
  5. KLONOPIN [Suspect]
     Active Substance: CLONAZEPAM
     Indication: INSOMNIA
  6. KLONOPIN [Suspect]
     Active Substance: CLONAZEPAM
     Indication: DEPRESSION
  7. TRAMADOL. [Concomitant]
     Active Substance: TRAMADOL

REACTIONS (17)
  - Amnesia [None]
  - Loss of employment [None]
  - Depression [None]
  - Suicide attempt [None]
  - Cerebrovascular accident [None]
  - Blood pressure increased [None]
  - Economic problem [None]
  - Insomnia [None]
  - Condition aggravated [None]
  - Confusional state [None]
  - Pain [None]
  - Headache [None]
  - Agoraphobia [None]
  - Palpitations [None]
  - Seizure [None]
  - Personal relationship issue [None]
  - Fatigue [None]

NARRATIVE: CASE EVENT DATE: 20020415
